FAERS Safety Report 9816060 (Version 1)
Quarter: 2014Q1

REPORT INFORMATION
  Report Type: Report from Study
  Country: US (occurrence: US)
  Receive Date: 20140114
  Receipt Date: 20140114
  Transmission Date: 20141002
  Serious: Yes (Death)
  Sender: FDA-Public Use
  Company Number: PHEH2014US001044

PATIENT
  Age: 15 Year
  Sex: Male

DRUGS (2)
  1. TOBI [Suspect]
     Indication: CYSTIC FIBROSIS
     Dosage: 300 MG, BID
     Route: 055
     Dates: start: 20130612, end: 20131218
  2. PROZAC [Concomitant]
     Dosage: UNK

REACTIONS (2)
  - Death [Fatal]
  - Irritability [Unknown]
